FAERS Safety Report 9687949 (Version 1)
Quarter: 2013Q4

REPORT INFORMATION
  Report Type: Spontaneous
  Country: US (occurrence: None)
  Receive Date: 20131113
  Receipt Date: 20131113
  Transmission Date: 20140711
  Serious: Yes (Death)
  Sender: FDA-Public Use
  Company Number: None

PATIENT
  Age: 71 Year
  Sex: Male

DRUGS (1)
  1. CHLORPROMAZINE [Suspect]

REACTIONS (4)
  - Hypophagia [None]
  - Hiccups [None]
  - Asthenia [None]
  - Skin discolouration [None]
